FAERS Safety Report 9036241 (Version 1)
Quarter: 2013Q1

REPORT INFORMATION
  Report Type: Spontaneous
  Country: US (occurrence: US)
  Receive Date: 20130129
  Receipt Date: 20130129
  Transmission Date: 20140127
  Serious: No
  Sender: FDA-Public Use
  Company Number: US-ABBOTT-12P-163-0920878-00

PATIENT
  Sex: Female

DRUGS (3)
  1. HUMIRA 40 MG/ 0.8 ML PRE-FILLED SYRINGE [Suspect]
     Indication: PRODUCT USED FOR UNKNOWN INDICATION
     Dates: start: 201108
  2. PREDNISONE [Suspect]
     Indication: PRODUCT USED FOR UNKNOWN INDICATION
     Dosage: WEANED OFF IN NOV 2011
  3. PREDNISONE [Suspect]

REACTIONS (5)
  - Erythema [Unknown]
  - Pruritus [Unknown]
  - Adverse drug reaction [Unknown]
  - Urticaria [Unknown]
  - Injection site urticaria [Unknown]
